FAERS Safety Report 13451743 (Version 3)
Quarter: 2017Q3

REPORT INFORMATION
  Report Type: Spontaneous
  Country: US (occurrence: US)
  Receive Date: 20170418
  Receipt Date: 20170717
  Transmission Date: 20171127
  Serious: No
  Sender: FDA-Public Use
  Company Number: US-PFIZER INC-2017162262

PATIENT
  Age: 72 Year
  Sex: Male

DRUGS (7)
  1. LYRICA [Suspect]
     Active Substance: PREGABALIN
     Indication: PAIN IN EXTREMITY
  2. DICLOFENAC SODIUM. [Concomitant]
     Active Substance: DICLOFENAC SODIUM
     Dosage: 75 MG, 2X/DAY
  3. METHOCARBAMOL. [Concomitant]
     Active Substance: METHOCARBAMOL
     Dosage: 750 MG, 2X/DAY, [2 TWICE DAILY]
  4. TRAMADOL. [Concomitant]
     Active Substance: TRAMADOL
     Dosage: 50 MG, 2X/DAY, [2 TWICE DAILY]
  5. OXYCODONE AND ACETAMINOPHEN [Concomitant]
     Active Substance: ACETAMINOPHEN\OXYCODONE HYDROCHLORIDE
     Dosage: UNK UNK, 2X/DAY, [ACETAMINOPHEN-325MG]/ [OXYCODONE10MG], [2 TWICE DAILY]
  6. LYRICA [Suspect]
     Active Substance: PREGABALIN
     Indication: BACK PAIN
  7. LYRICA [Suspect]
     Active Substance: PREGABALIN
     Indication: PAIN
     Dosage: 400 MG, DAILY, [100MG, 1-AM, 1-AFTERNOON, 2-NIGHT TIME]
     Dates: start: 201704

REACTIONS (1)
  - Drug ineffective [Unknown]
